FAERS Safety Report 4874952-X (Version None)
Quarter: 2006Q1

REPORT INFORMATION
  Report Type: 
  Country: None (occurrence: None)
  Receive Date: 20060104
  Receipt Date: 20051223
  Transmission Date: 20060701
  Serious: Yes (Other)
  Sender: FDA-Public Use
  Company Number: 2005149538

PATIENT
  Age: 68 Year
  Sex: Female

DRUGS (6)
  1. VFEND [Suspect]
     Indication: FEBRILE NEUTROPENIA
     Dosage: 400 MG, ORAL
     Route: 048
     Dates: start: 20051020, end: 20051030
  2. CARMENT (LERCANIDIPINE) [Concomitant]
  3. DELIX PLUS (HYDROCHLOROTHIAZIDE, RAMIPRIL) [Concomitant]
  4. LEVOFLOXACIN [Concomitant]
  5. PASPERTIN (METOCLOPRAMIDE HYDROCHLORIDE) [Concomitant]
  6. VANCOMYCIN [Concomitant]

REACTIONS (7)
  - ACUTE MYELOID LEUKAEMIA [None]
  - HYPERTENSION [None]
  - MULTIPLE ALLERGIES [None]
  - MUSCLE CONTRACTIONS INVOLUNTARY [None]
  - PANCYTOPENIA [None]
  - RENAL IMPAIRMENT [None]
  - TREMOR [None]
